FAERS Safety Report 4842858-8 (Version None)
Quarter: 2005Q4

REPORT INFORMATION
  Report Type: 
  Country: None (occurrence: None)
  Receive Date: 20051129
  Receipt Date: 20051109
  Transmission Date: 20060501
  Serious: Yes (Hospitalization)
  Sender: FDA-Public Use
  Company Number: EWC051147227

PATIENT
  Sex: Male

DRUGS (10)
  1. GEMCITABINE HYDROCHLORIDE (GEMCITABINE HYDROCHLORIDE) VIAL [Suspect]
     Indication: NON-SMALL CELL LUNG CANCER
     Dosage: SEE IMAGE
     Route: 042
     Dates: start: 20050919, end: 20051107
  2. GEMCITABINE HYDROCHLORIDE (GEMCITABINE HYDROCHLORIDE) VIAL [Suspect]
     Indication: NON-SMALL CELL LUNG CANCER
     Dosage: SEE IMAGE
     Route: 042
     Dates: start: 20050919
  3. CARBOPLATIN [Concomitant]
  4. PRAVASTATIN [Concomitant]
  5. NEXIUM [Concomitant]
  6. FOLIC ACID [Concomitant]
  7. VITAMIN B12 [Concomitant]
  8. TRIMIPRAMINE MALEATE [Concomitant]
  9. ISCADOR (VISCUM ALBUM EXTRACT) [Concomitant]
  10. MOTILIUM [Concomitant]

REACTIONS (5)
  - CAPILLARY LEAK SYNDROME [None]
  - DYSPNOEA [None]
  - OEDEMA PERIPHERAL [None]
  - SWELLING FACE [None]
  - WEIGHT INCREASED [None]
